FAERS Safety Report 24387099 (Version 1)
Quarter: 2024Q4

REPORT INFORMATION
  Report Type: Spontaneous
  Country: US (occurrence: US)
  Receive Date: 20241002
  Receipt Date: 20241002
  Transmission Date: 20250115
  Serious: Yes (Hospitalization)
  Sender: VERICEL
  Company Number: US-VERICEL-US-VCEL-24-000359

PATIENT
  Sex: Male

DRUGS (1)
  1. BROMELAINS [Suspect]
     Active Substance: BROMELAINS
     Indication: Product used for unknown indication
     Dosage: N/A
     Route: 065
     Dates: start: 20240918, end: 20240918

REACTIONS (2)
  - Haemorrhage [Unknown]
  - Wrong technique in product usage process [Unknown]
